FAERS Safety Report 7010839-4 (Version None)
Quarter: 2010Q3

REPORT INFORMATION
  Report Type: 
  Country: None (occurrence: None)
  Receive Date: 20100923
  Receipt Date: 20100923
  Transmission Date: 20110219
  Serious: Yes (Hospitalization)
  Sender: FDA-Public Use
  Company Number: None

PATIENT
  Age: 73 Year
  Sex: Male
  Weight: 82.3 kg

DRUGS (10)
  1. DECITABINE 0.2MG/KG [Suspect]
     Indication: ACUTE MYELOID LEUKAEMIA
     Dosage: 16.48MG 3X/WK, SUB-Q INJ
     Route: 058
     Dates: start: 20100726, end: 20100830
  2. CO[RP [Concomitant]
  3. BMX SOLUTION [Concomitant]
  4. ACYCLOVIR SODIUM [Concomitant]
  5. DOCUSATE SODIUM [Concomitant]
  6. DIFLUCAN [Concomitant]
  7. HYDROCHLOROTHIAZIDE [Concomitant]
  8. CIALIS [Concomitant]
  9. NEURONTIN [Concomitant]
  10. SALT/SODA SOLUTION [Concomitant]

REACTIONS (3)
  - APHTHOUS STOMATITIS [None]
  - NEUTROPENIA [None]
  - PYREXIA [None]
